FAERS Safety Report 11308178 (Version 1)
Quarter: 2015Q3

REPORT INFORMATION
  Report Type: Spontaneous
  Country: FR (occurrence: FR)
  Receive Date: 20150724
  Receipt Date: 20150724
  Transmission Date: 20151125
  Serious: Yes (Hospitalization, Other)
  Sender: FDA-Public Use
  Company Number: FR-009507513-2010SP040548

PATIENT
  Age: 19 Year
  Sex: Female

DRUGS (1)
  1. VARNOLINE [Suspect]
     Active Substance: DESOGESTREL\ETHINYL ESTRADIOL
     Indication: ORAL CONTRACEPTION
     Dosage: UNK
     Route: 048
     Dates: start: 2006, end: 201005

REACTIONS (6)
  - Weight increased [Unknown]
  - Vomiting [Unknown]
  - Aphthous ulcer [Unknown]
  - Henoch-Schonlein purpura [Not Recovered/Not Resolved]
  - Hypertension [Unknown]
  - Nausea [Unknown]

NARRATIVE: CASE EVENT DATE: 200910
